FAERS Safety Report 15992087 (Version 2)
Quarter: 2019Q2

REPORT INFORMATION
  Report Type: Report from Study
  Country: US (occurrence: US)
  Receive Date: 20190221
  Receipt Date: 20190404
  Transmission Date: 20190711
  Serious: Yes (Hospitalization, Disabling, Other)
  Sender: FDA-Public Use
  Company Number: US-REGENERON PHARMACEUTICALS, INC.-2019-17633

PATIENT

DRUGS (1)
  1. EYLEA [Suspect]
     Active Substance: AFLIBERCEPT
     Indication: NEOVASCULAR AGE-RELATED MACULAR DEGENERATION

REACTIONS (3)
  - Blindness transient [Recovered/Resolved]
  - Dry age-related macular degeneration [Unknown]
  - Uterine cancer [Unknown]

NARRATIVE: CASE EVENT DATE: 20181213
